FAERS Safety Report 7029478-4 (Version None)
Quarter: 2010Q4

REPORT INFORMATION
  Report Type: 
  Country: None (occurrence: None)
  Receive Date: 20101005
  Receipt Date: 20100921
  Transmission Date: 20110411
  Serious: Yes (Other)
  Sender: FDA-Public Use
  Company Number: CA-GENENTECH-290971

PATIENT
  Sex: Female
  Weight: 138.32 kg

DRUGS (2)
  1. XOLAIR [Suspect]
     Indication: ASTHMA
     Dosage: 300 MG, Q3W
     Route: 058
     Dates: start: 20080129
  2. XOLAIR [Suspect]
     Dosage: 300 MG, UNK
     Route: 058
     Dates: start: 20090817

REACTIONS (10)
  - ARTERIAL OCCLUSIVE DISEASE [None]
  - ASTHMA [None]
  - BLOOD PRESSURE DECREASED [None]
  - CELLULITIS [None]
  - CHEST DISCOMFORT [None]
  - CONSTIPATION [None]
  - DYSPNOEA [None]
  - HEART RATE INCREASED [None]
  - HYPERSENSITIVITY [None]
  - WOUND [None]
